FAERS Safety Report 8553952-2 (Version None)
Quarter: 2012Q3

REPORT INFORMATION
  Report Type: 
  Country: None (occurrence: None)
  Receive Date: 20120731
  Receipt Date: 20120723
  Transmission Date: 20120928
  Serious: Yes (Hospitalization)
  Sender: FDA-Public Use
  Company Number: TR-AMGEN-TURSP2012047273

PATIENT
  Age: 45 Year
  Sex: Male

DRUGS (1)
  1. ENBREL [Suspect]
     Indication: RHEUMATOID ARTHRITIS
     Dosage: 50 MG, WEEKLY
     Route: 058
     Dates: start: 20120412, end: 20120425

REACTIONS (3)
  - GAIT DISTURBANCE [None]
  - OEDEMA PERIPHERAL [None]
  - GOUT [None]
